FAERS Safety Report 13077761 (Version 1)
Quarter: 2017Q1

REPORT INFORMATION
  Report Type: Spontaneous
  Country: US (occurrence: US)
  Receive Date: 20170101
  Receipt Date: 20170101
  Transmission Date: 20170428
  Serious: Yes (Hospitalization, Other)
  Sender: FDA-Public Use
  Company Number: US-ZYDUS-013028

PATIENT
  Age: 37 Year
  Sex: Male

DRUGS (1)
  1. MORPHINE/MORPHINE HYDROCHLORIDE/MORPHINE SULFATE/MORPHINE TARTRATE [Suspect]
     Active Substance: MORPHINE\MORPHINE HYDROCHLORIDE\MORPHINE SULFATE\MORPHINE TARTRATE
     Indication: BACK PAIN
     Route: 042

REACTIONS (10)
  - Electrocardiogram PR shortened [Recovered/Resolved]
  - Intentional product misuse [Unknown]
  - Pericarditis [Unknown]
  - Chest pain [Unknown]
  - Pericardial effusion [Recovered/Resolved]
  - Dyspnoea [Unknown]
  - Electrocardiogram QT prolonged [Recovered/Resolved]
  - Incorrect route of drug administration [Unknown]
  - Emotional distress [Unknown]
  - Electrocardiogram T wave inversion [Recovered/Resolved]
